FAERS Safety Report 24578396 (Version 1)
Quarter: 2024Q4

REPORT INFORMATION
  Report Type: Spontaneous
  Country: JP (occurrence: JP)
  Receive Date: 20241105
  Receipt Date: 20241105
  Transmission Date: 20250114
  Serious: Yes (Hospitalization, Other)
  Sender: SANDOZ
  Company Number: JP-SANDOZ INC.-SDZ2024JP091533

PATIENT
  Age: 40 Year
  Sex: Female

DRUGS (1)
  1. XYLOCAINE [Suspect]
     Active Substance: LIDOCAINE HYDROCHLORIDE
     Indication: Anaesthesia procedure
     Dosage: A TOTAL OF 9 ML
     Route: 008

REACTIONS (6)
  - Pneumocephalus [Recovering/Resolving]
  - Respiratory depression [Recovering/Resolving]
  - Altered state of consciousness [Recovering/Resolving]
  - Sensory disturbance [Unknown]
  - Bradycardia [Unknown]
  - Maternal exposure during delivery [Unknown]
